FAERS Safety Report 5059095-7 (Version None)
Quarter: 2006Q3

REPORT INFORMATION
  Report Type: 
  Country: None (occurrence: None)
  Receive Date: 20060718
  Receipt Date: 20060705
  Transmission Date: 20061208
  Serious: Yes (Hospitalization, Other)
  Sender: FDA-Public Use
  Company Number: 2006060672

PATIENT
  Age: 39 Year
  Sex: Female
  Weight: 102.0593 kg

DRUGS (2)
  1. CELEBREX [Suspect]
     Indication: PAIN MANAGEMENT
     Dosage: 200 MG (200 MG, 1 IN 1 D)
     Dates: start: 19990806, end: 19991011
  2. BEXTRA [Suspect]
     Indication: PAIN MANAGEMENT
     Dosage: 20 MG
     Dates: start: 20030318, end: 20030401

REACTIONS (4)
  - CARDIOMYOPATHY [None]
  - CARDIOVASCULAR DISORDER [None]
  - MYOCARDIAL INFARCTION [None]
  - PALPITATIONS [None]
